FAERS Safety Report 17598303 (Version 1)
Quarter: 2020Q1

REPORT INFORMATION
  Report Type: Spontaneous
  Country: US (occurrence: US)
  Receive Date: 20200328
  Receipt Date: 20200328
  Transmission Date: 20200409
  Serious: Yes (Other)
  Sender: FDA-Public Use
  Company Number: None

PATIENT
  Age: 16 Month
  Sex: Male
  Weight: 9.9 kg

DRUGS (2)
  1. LORATADINE. [Concomitant]
     Active Substance: LORATADINE
  2. CEFDINIR. [Suspect]
     Active Substance: CEFDINIR
     Dosage: ?          QUANTITY:3.5 ML;?

REACTIONS (5)
  - Screaming [None]
  - Aggression [None]
  - Flushing [None]
  - Inappropriate affect [None]
  - Psychomotor hyperactivity [None]

NARRATIVE: CASE EVENT DATE: 20200327
